FAERS Safety Report 15005559 (Version 4)
Quarter: 2019Q4

REPORT INFORMATION
  Report Type: Spontaneous
  Country: US (occurrence: US)
  Receive Date: 20180613
  Receipt Date: 20191024
  Transmission Date: 20200122
  Serious: Yes (Other)
  Sender: FDA-Public Use
  Company Number: US-SA-2018SA150229

PATIENT
  Age: 47 Year
  Sex: Female

DRUGS (1)
  1. TERIFLUNOMIDE. [Suspect]
     Active Substance: TERIFLUNOMIDE
     Indication: PRODUCT USED FOR UNKNOWN INDICATION
     Dosage: 14 MG
     Route: 048
     Dates: start: 20180530, end: 20180530

REACTIONS (7)
  - Hysterectomy [Unknown]
  - Fatigue [Unknown]
  - Condition aggravated [Unknown]
  - Impaired healing [Unknown]
  - Lethargy [Unknown]
  - Alopecia [Unknown]
  - Disturbance in attention [Unknown]
